FAERS Safety Report 19412865 (Version 1)
Quarter: 2021Q2

REPORT INFORMATION
  Report Type: Spontaneous
  Country: JP (occurrence: JP)
  Receive Date: 20210614
  Receipt Date: 20210614
  Transmission Date: 20210717
  Serious: Yes (Other)
  Sender: FDA-Public Use
  Company Number: JP-UCBSA-2021019135

PATIENT
  Age: 9 Decade
  Sex: Female

DRUGS (5)
  1. FYCOMPA [Suspect]
     Active Substance: PERAMPANEL
     Indication: PARTIAL SEIZURES
     Dosage: 2 MILLIGRAM, 2X/DAY (BID)
     Route: 048
     Dates: start: 20210401
  2. DEPAKENE [VALPROATE SODIUM] [Concomitant]
     Active Substance: VALPROATE SODIUM
     Indication: BEHAVIOUR DISORDER
     Dosage: 100 MILLIGRAM, 2X/DAY (BID)
     Route: 048
     Dates: end: 20210409
  3. VIMPAT [Suspect]
     Active Substance: LACOSAMIDE
     Indication: EPILEPSY
     Dosage: 50 MILLIGRAM, 2X/DAY (BID)
     Route: 048
     Dates: start: 20210315, end: 20210321
  4. LEMBOREXANT [Suspect]
     Active Substance: LEMBOREXANT
     Indication: INSOMNIA
     Dosage: 5 MG DAILY
     Route: 048
  5. VIMPAT [Suspect]
     Active Substance: LACOSAMIDE
     Indication: PARTIAL SEIZURES
     Dosage: 100 MILLIGRAM, 2X/DAY (BID)
     Route: 048
     Dates: start: 20210322, end: 20210409

REACTIONS (3)
  - Depressed level of consciousness [Recovered/Resolved]
  - Sedation [Recovered/Resolved]
  - Off label use [Unknown]

NARRATIVE: CASE EVENT DATE: 20210315
